FAERS Safety Report 7600510-X (Version None)
Quarter: 2011Q3

REPORT INFORMATION
  Report Type: 
  Country: None (occurrence: None)
  Receive Date: 20110711
  Receipt Date: 20110627
  Transmission Date: 20111222
  Serious: Yes (Hospitalization, Other)
  Sender: FDA-Public Use
  Company Number: US-ROCHE-583680

PATIENT

DRUGS (6)
  1. DACLIZUMAB [Suspect]
     Indication: PROPHYLAXIS AGAINST TRANSPLANT REJECTION
     Dosage: GIVEN INTRAOPERATIVELY
     Route: 065
  2. THYMOGLOBULIN [Suspect]
     Dosage: GIVEN INTRAOPERATIVELY
     Route: 065
  3. DACLIZUMAB [Suspect]
     Dosage: ADMINISTERED 14 DAYS AFTER THE FIRST DOSE.
     Route: 065
  4. MYCOPHENOLATE MEFETIL [Suspect]
     Indication: PROPHYLAXIS AGAINST TRANSPLANT REJECTION
     Route: 065
  5. TACROLIMUS [Suspect]
     Indication: PROPHYLAXIS AGAINST TRANSPLANT REJECTION
     Route: 065
  6. METHYLPREDNISOLONE [Suspect]
     Indication: PROPHYLAXIS AGAINST TRANSPLANT REJECTION
     Route: 042

REACTIONS (16)
  - GASTROINTESTINAL HAEMORRHAGE [None]
  - URINARY TRACT INFECTION [None]
  - CLOSTRIDIUM DIFFICILE COLITIS [None]
  - LOCALISED INFECTION [None]
  - HERPES ZOSTER [None]
  - VOMITING [None]
  - BACTERAEMIA [None]
  - WOUND INFECTION [None]
  - DIARRHOEA [None]
  - UPPER RESPIRATORY TRACT INFECTION [None]
  - GASTROINTESTINAL DISORDER [None]
  - CYTOMEGALOVIRUS INFECTION [None]
  - DIABETES MELLITUS [None]
  - PNEUMONIA [None]
  - NAUSEA [None]
  - ABDOMINAL PAIN UPPER [None]
